FAERS Safety Report 8713601 (Version 4)
Quarter: 2013Q1

REPORT INFORMATION
  Report Type: Spontaneous
  Country: US (occurrence: US)
  Receive Date: 20120808
  Receipt Date: 20130227
  Transmission Date: 20140127
  Serious: Yes (Hospitalization)
  Sender: FDA-Public Use
  Company Number: US-ASTRAZENECA-2012SE55077

PATIENT
  Age: 55 Year
  Sex: Female
  Weight: 117.9 kg

DRUGS (11)
  1. NEXIUM [Suspect]
     Indication: OESOPHAGEAL PERFORATION
     Route: 048
     Dates: start: 2002
  2. NEXIUM [Suspect]
     Indication: OESOPHAGEAL PERFORATION
     Route: 048
     Dates: start: 2008
  3. NEXIUM [Suspect]
     Indication: OESOPHAGEAL PERFORATION
     Dosage: GENERIC
     Route: 048
  4. OMEPRAZOLE [Suspect]
     Indication: OESOPHAGEAL PERFORATION
     Route: 048
     Dates: start: 2008, end: 2008
  5. EFFEXOR XR [Concomitant]
     Indication: DEPRESSION
     Route: 048
     Dates: start: 1997
  6. METFORMIN [Concomitant]
     Indication: DIABETES MELLITUS
     Route: 048
  7. ATENOLOL [Concomitant]
     Indication: HYPERTENSION
     Route: 048
  8. ASPIRIN [Concomitant]
     Indication: ATRIAL FIBRILLATION
     Route: 048
     Dates: start: 201109
  9. GENERIC REQUIP [Concomitant]
     Indication: RESTLESS LEGS SYNDROME
     Route: 048
  10. SIMVASTATIN [Concomitant]
     Indication: BLOOD CHOLESTEROL INCREASED
     Route: 048
  11. LEVOTHYROXINE [Concomitant]
     Indication: THYROID DISORDER
     Route: 048

REACTIONS (9)
  - Atrial fibrillation [Unknown]
  - Gastrooesophageal reflux disease [Unknown]
  - Chest pain [Unknown]
  - Restless legs syndrome [Unknown]
  - Malaise [Unknown]
  - Blood magnesium decreased [Unknown]
  - Vomiting [Unknown]
  - Off label use [Unknown]
  - Drug dose omission [Unknown]
